FAERS Safety Report 4721175-0 (Version None)
Quarter: 2005Q3

REPORT INFORMATION
  Report Type: 
  Country: None (occurrence: None)
  Receive Date: 20050722
  Receipt Date: 20050620
  Transmission Date: 20060218
  Serious: Yes (Other)
  Sender: FDA-Public Use
  Company Number: US-MERCK-0506USA03249

PATIENT
  Age: 48 Year
  Sex: Female

DRUGS (6)
  1. VYTORIN [Suspect]
     Indication: HYPERLIPIDAEMIA
     Route: 048
     Dates: start: 20050503, end: 20050530
  2. CYMBALTA [Concomitant]
     Route: 065
     Dates: start: 20050503
  3. LASIX [Concomitant]
     Route: 065
  4. INSULIN [Concomitant]
     Route: 065
  5. METHADONE HYDROCHLORIDE [Concomitant]
     Route: 065
  6. PRILOSEC [Concomitant]
     Route: 065

REACTIONS (3)
  - ALANINE AMINOTRANSFERASE INCREASED [None]
  - ASPARTATE AMINOTRANSFERASE INCREASED [None]
  - BLOOD ALKALINE PHOSPHATASE INCREASED [None]
